FAERS Safety Report 18607151 (Version 1)
Quarter: 2020Q4

REPORT INFORMATION
  Report Type: Spontaneous
  Country: US (occurrence: US)
  Receive Date: 20201211
  Receipt Date: 20201211
  Transmission Date: 20210114
  Serious: No
  Sender: FDA-Public Use
  Company Number: US-ALXN-A202017724

PATIENT
  Sex: Female

DRUGS (1)
  1. STRENSIQ [Suspect]
     Active Substance: ASFOTASE ALFA
     Indication: HYPOPHOSPHATASIA
     Dosage: UNK
     Route: 058
     Dates: start: 20161030

REACTIONS (11)
  - Nervous system disorder [Unknown]
  - Rash [Unknown]
  - Renal disorder [Unknown]
  - Rash macular [Unknown]
  - Rash pruritic [Unknown]
  - Skin injury [Unknown]
  - Skin atrophy [Unknown]
  - Adverse drug reaction [Unknown]
  - Injection site bruising [Unknown]
  - Cerebral disorder [Unknown]
  - Arthropathy [Unknown]
